FAERS Safety Report 14081611 (Version 1)
Quarter: 2017Q4

REPORT INFORMATION
  Report Type: Spontaneous
  Country: GB (occurrence: GB)
  Receive Date: 20171013
  Receipt Date: 20171013
  Transmission Date: 20180321
  Serious: Yes (Other)
  Sender: FDA-Public Use
  Company Number: GB-BAYER-2017-193545

PATIENT

DRUGS (1)
  1. CIPROFLOXACIN. [Suspect]
     Active Substance: CIPROFLOXACIN
     Indication: LOWER RESPIRATORY TRACT INFECTION
     Dosage: 750 MG, UNK

REACTIONS (7)
  - Deformity [None]
  - Plantar fasciitis [None]
  - Cough [None]
  - Intervertebral disc displacement [None]
  - Joint dislocation [None]
  - Cartilage injury [None]
  - Rib fracture [None]
